FAERS Safety Report 9096940 (Version 1)
Quarter: 2013Q1

REPORT INFORMATION
  Report Type: Spontaneous
  Country: US (occurrence: None)
  Receive Date: 20130125
  Receipt Date: 20130125
  Transmission Date: 20140127
  Serious: No
  Sender: FDA-Public Use
  Company Number: E2B_00000555

PATIENT
  Age: 59 Year
  Sex: Male
  Weight: 72.58 kg

DRUGS (1)
  1. LOSARTAN  POTASSIUM/HYDROCHLOROTHIAZIDE TABLETS USP 100MG/25MG (LOSARTAN POTASSIUM AND HYDROCHLOROTHIAZIDE TABLETS USP 100MG/25MG) (HYDROCHLOROTHIAZIDE, LOSARTAN POTASSIUM) [Suspect]
     Indication: HYPERTENSION
     Dosage: 100MG/25MG (1 IN 1D), PER ORAL
     Route: 048
     Dates: start: 20130108

REACTIONS (6)
  - Dizziness [None]
  - Skin injury [None]
  - Fall [None]
  - Hypotension [None]
  - Medication error [None]
  - Wrong technique in drug usage process [None]
